FAERS Safety Report 9675337 (Version 1)
Quarter: 2013Q4

REPORT INFORMATION
  Report Type: Spontaneous
  Country: DE (occurrence: DE)
  Receive Date: 20131107
  Receipt Date: 20131107
  Transmission Date: 20140711
  Serious: Yes (Life-Threatening, Hospitalization)
  Sender: FDA-Public Use
  Company Number: DE-ASTRAZENECA-2013SE80748

PATIENT
  Age: 56 Year
  Sex: Female
  Weight: 78.5 kg

DRUGS (12)
  1. ATACAND [Suspect]
     Route: 048
     Dates: start: 20110706
  2. ATACAND [Suspect]
     Route: 048
     Dates: end: 20110706
  3. NIFEDIPIN [Suspect]
     Route: 048
     Dates: end: 20110706
  4. QUILONUM RETARD [Suspect]
     Route: 048
     Dates: end: 20110705
  5. QUILONUM RETARD [Suspect]
     Route: 048
     Dates: start: 20110706, end: 20110706
  6. QUILONUM RETARD [Suspect]
     Dosage: 225-675 MG, DAILY
     Route: 048
     Dates: start: 20110711
  7. ENALAPRIL [Suspect]
     Route: 048
     Dates: start: 20110706
  8. ENALAPRIL [Suspect]
     Route: 048
     Dates: start: 20110711
  9. STANGYL [Suspect]
     Route: 048
     Dates: end: 20110705
  10. CLOMIPRAMIN [Suspect]
     Route: 048
     Dates: start: 20110706, end: 20110706
  11. CLOMIPRAMIN [Suspect]
     Route: 048
     Dates: start: 20110712
  12. EUTHYROX [Concomitant]
     Route: 048
     Dates: start: 20110606

REACTIONS (1)
  - Toxicity to various agents [Recovered/Resolved]
